FAERS Safety Report 7473960-2 (Version None)
Quarter: 2011Q2

REPORT INFORMATION
  Report Type: 
  Country: None (occurrence: None)
  Receive Date: 20110511
  Receipt Date: 20081111
  Transmission Date: 20111010
  Serious: Yes (Death)
  Sender: FDA-Public Use
  Company Number: US-BAYER-200838530NA

PATIENT
  Age: 76 Year
  Sex: Female
  Weight: 54.422 kg

DRUGS (20)
  1. TRASYLOL [Suspect]
     Indication: AORTIC VALVE REPLACEMENT
     Dosage: 200 ML, ONCE
     Route: 042
     Dates: start: 20060117, end: 20060117
  2. ZOCOR [Concomitant]
     Dosage: 20 MG, QPM
     Route: 048
  3. LOPRESSOR [Concomitant]
     Dosage: 50 MG, BID
     Route: 048
  4. TRASYLOL [Suspect]
     Indication: CORONARY ARTERY BYPASS
     Dosage: 1 ML, ONCE
     Route: 042
     Dates: start: 20060117, end: 20060117
  5. FORANE [Concomitant]
     Dosage: 10 MG, UNK
     Route: 042
     Dates: start: 20060117, end: 20060117
  6. PROTAMINE SULFATE [Concomitant]
     Dosage: 350 G, UNK
     Route: 042
     Dates: start: 20060117, end: 20060117
  7. TRASYLOL [Suspect]
     Indication: CARDIAC OPERATION
     Dosage: 50 ML, Q1HR
     Route: 042
     Dates: start: 20060117, end: 20060117
  8. PLASMA [Concomitant]
     Dosage: 2 U, UNK
     Route: 042
     Dates: start: 20060117, end: 20060117
  9. COUMADIN [Concomitant]
     Route: 048
  10. EPINEPHRINE [Concomitant]
     Dosage: 0.07MG/KG, Q1HR
     Route: 042
     Dates: start: 20060117, end: 20060117
  11. VASOTEC [Concomitant]
     Dosage: 5 MG, QD
     Route: 048
  12. VERSED [Concomitant]
     Dosage: 11 MG, UNK
     Dates: start: 20060117, end: 20060117
  13. PAVULON [Concomitant]
     Dosage: 20 MG, UNK
     Route: 042
     Dates: start: 20060117, end: 20060117
  14. DOPAMINE HCL [Concomitant]
     Dosage: 2MG/KG/MIN
     Route: 042
     Dates: start: 20060117, end: 20060117
  15. VANCOMYCIN [Concomitant]
     Dosage: 1 G, UNK
     Route: 042
     Dates: start: 20060117, end: 20060117
  16. RED BLOOD CELLS [Concomitant]
     Dosage: 2 U, UNK
     Route: 042
     Dates: start: 20060117, end: 20060117
  17. PROPOFOL [Concomitant]
     Dosage: 2.5MG/KG , Q1HR
     Route: 042
     Dates: start: 20060117, end: 20060117
  18. AMIODARONE HCL [Concomitant]
     Dosage: 150 MG, UNK
     Route: 042
     Dates: start: 20060117, end: 20060117
  19. PHENYLEPHRIN [Concomitant]
     Dosage: 100 MCG, UNK
     Route: 042
     Dates: start: 20060117, end: 20060117
  20. ZINACEF [Concomitant]
     Dosage: 1.5 G, UNK
     Route: 042
     Dates: start: 20060117, end: 20060117

REACTIONS (9)
  - RENAL FAILURE ACUTE [None]
  - INJURY [None]
  - ACUTE HEPATIC FAILURE [None]
  - CARDIOGENIC SHOCK [None]
  - CORONARY ARTERY DISEASE [None]
  - ARTERIOSCLEROSIS [None]
  - ANHEDONIA [None]
  - AORTIC VALVE INCOMPETENCE [None]
  - PAIN [None]
